FAERS Safety Report 5732188-4 (Version None)
Quarter: 2008Q2

REPORT INFORMATION
  Report Type: 
  Country: None (occurrence: None)
  Receive Date: 20080508
  Receipt Date: 20080428
  Transmission Date: 20081010
  Serious: Yes (Hospitalization)
  Sender: FDA-Public Use
  Company Number: IL-PFIZER INC-2008033851

PATIENT
  Age: 60 Year
  Sex: Female

DRUGS (4)
  1. SUTENT [Suspect]
     Route: 048
     Dates: start: 20080317, end: 20080401
  2. SUTENT [Suspect]
  3. NORMITEN [Concomitant]
     Indication: HYPERTENSION
  4. VASCASE [Concomitant]
     Indication: HYPERTENSION

REACTIONS (1)
  - CONVULSION [None]
